FAERS Safety Report 5234484-6 (Version None)
Quarter: 2007Q1

REPORT INFORMATION
  Report Type: 
  Country: None (occurrence: None)
  Receive Date: 20070209
  Receipt Date: 20070202
  Transmission Date: 20070707
  Serious: Yes (Hospitalization)
  Sender: FDA-Public Use
  Company Number: 200710425EU

PATIENT
  Sex: Female

DRUGS (1)
  1. NICOTINE [Suspect]
     Route: 002

REACTIONS (1)
  - BLOOD GLUCOSE ABNORMAL [None]
